FAERS Safety Report 6862943-9 (Version None)
Quarter: 2010Q3

REPORT INFORMATION
  Report Type: 
  Country: None (occurrence: None)
  Receive Date: 20100721
  Receipt Date: 20100714
  Transmission Date: 20110219
  Serious: Yes (Other)
  Sender: FDA-Public Use
  Company Number: A0871307A

PATIENT
  Sex: Female
  Weight: 104 kg

DRUGS (1)
  1. NIQUITIN CQ 4MG LOZENGE [Suspect]
     Indication: SMOKING CESSATION THERAPY
     Dosage: 15LOZ PER DAY
     Route: 002
     Dates: start: 20100713

REACTIONS (5)
  - ANGIOEDEMA [None]
  - DYSPHONIA [None]
  - PARAESTHESIA [None]
  - PARAESTHESIA ORAL [None]
  - THROAT IRRITATION [None]
